FAERS Safety Report 21713276 (Version 2)
Quarter: 2023Q1

REPORT INFORMATION
  Report Type: Spontaneous
  Country: JP (occurrence: JP)
  Receive Date: 20221212
  Receipt Date: 20230118
  Transmission Date: 20230418
  Serious: Yes (Hospitalization, Other)
  Sender: FDA-Public Use
  Company Number: JP-ONO-2022JP028416

PATIENT
  Age: 8 Decade

DRUGS (6)
  1. OPDIVO [Suspect]
     Active Substance: NIVOLUMAB
     Indication: Gastric cancer
     Dosage: 360 MG, Q3W (EVERY 3 WEEK)
     Route: 041
     Dates: start: 202208
  2. OPDIVO [Suspect]
     Active Substance: NIVOLUMAB
     Dosage: 360 MG, Q3W (EVERY 3 WEEK)
     Route: 041
     Dates: start: 20220701, end: 202209
  3. OPDIVO [Suspect]
     Active Substance: NIVOLUMAB
     Route: 041
     Dates: start: 202211
  4. TS-1 [Suspect]
     Active Substance: GIMERACIL\OTERACIL\TEGAFUR
     Indication: Gastric cancer
     Dosage: UNK
     Route: 048
  5. TS-1 [Suspect]
     Active Substance: GIMERACIL\OTERACIL\TEGAFUR
     Dosage: UNK
     Route: 048
  6. OXALIPLATIN [Concomitant]
     Active Substance: OXALIPLATIN
     Indication: Gastric cancer
     Dosage: UNK
     Route: 042

REACTIONS (3)
  - Adrenal insufficiency [Not Recovered/Not Resolved]
  - Taste disorder [Recovered/Resolved]
  - Adrenocorticotropic hormone deficiency [Recovering/Resolving]

NARRATIVE: CASE EVENT DATE: 20220901
